FAERS Safety Report 22605024 (Version 1)
Quarter: 2023Q2

REPORT INFORMATION
  Report Type: Spontaneous
  Country: NL (occurrence: NL)
  Receive Date: 20230615
  Receipt Date: 20230615
  Transmission Date: 20230722
  Serious: Yes (Other)
  Sender: FDA-Public Use
  Company Number: None

PATIENT
  Age: 75 Year

DRUGS (2)
  1. GEMCITABINE [Suspect]
     Active Substance: GEMCITABINE
     Indication: Cholangiocarcinoma
     Dosage: 1000 MG/M2, CYCLIC (ON DAY 1 AND 8, EVERY 3 WEEKS, 6 CYCLES)
     Route: 065
  2. CISPLATIN [Suspect]
     Active Substance: CISPLATIN
     Indication: Cholangiocarcinoma
     Dosage: 25 MG/M2, CYCLIC (ON DAY 1 AND 8, EVERY 3 WEEKS, 6 CYCLES)
     Route: 065

REACTIONS (4)
  - Neuropathy peripheral [Unknown]
  - Myelosuppression [Unknown]
  - Pyrexia [Unknown]
  - Product use in unapproved indication [Unknown]
